FAERS Safety Report 7946933-0 (Version None)
Quarter: 2011Q4

REPORT INFORMATION
  Report Type: 
  Country: None (occurrence: None)
  Receive Date: 20111129
  Receipt Date: 20050718
  Transmission Date: 20120403
  Serious: Yes (Other)
  Sender: FDA-Public Use
  Company Number: PHHY2005US006989

PATIENT
  Age: 60 Year
  Sex: Female

DRUGS (1)
  1. MIACALCIN [Suspect]

REACTIONS (1)
  - STRESS FRACTURE [None]
